FAERS Safety Report 25091010 (Version 1)
Quarter: 2025Q1

REPORT INFORMATION
  Report Type: Report from Study
  Country: CA (occurrence: CA)
  Receive Date: 20250318
  Receipt Date: 20250318
  Transmission Date: 20250408
  Serious: No
  Sender: TAKEDA
  Company Number: CA-TAKEDA-2024TUS095271

PATIENT
  Sex: Female

DRUGS (23)
  1. HUMAN IMMUNOGLOBULIN G\HYALURONIDASE RECOMBINANT HUMAN [Suspect]
     Active Substance: HUMAN IMMUNOGLOBULIN G\HYALURONIDASE (HUMAN RECOMBINANT)
     Indication: Secondary immunodeficiency
     Dosage: 32.5 GRAM, Q4WEEKS
     Dates: start: 20240909
  2. HUMAN IMMUNOGLOBULIN G\HYALURONIDASE RECOMBINANT HUMAN [Suspect]
     Active Substance: HUMAN IMMUNOGLOBULIN G\HYALURONIDASE (HUMAN RECOMBINANT)
     Dosage: 32.5 GRAM, Q4WEEKS
  3. HUMAN IMMUNOGLOBULIN G\HYALURONIDASE RECOMBINANT HUMAN [Suspect]
     Active Substance: HUMAN IMMUNOGLOBULIN G\HYALURONIDASE (HUMAN RECOMBINANT)
     Dosage: 32.5 GRAM, Q4WEEKS
  4. HUMAN IMMUNOGLOBULIN G\HYALURONIDASE RECOMBINANT HUMAN [Suspect]
     Active Substance: HUMAN IMMUNOGLOBULIN G\HYALURONIDASE (HUMAN RECOMBINANT)
     Dosage: 32.5 GRAM, Q4WEEKS
  5. HUMAN IMMUNOGLOBULIN G\HYALURONIDASE RECOMBINANT HUMAN [Suspect]
     Active Substance: HUMAN IMMUNOGLOBULIN G\HYALURONIDASE (HUMAN RECOMBINANT)
     Dosage: 32.5 GRAM, Q4WEEKS
  6. HUMAN IMMUNOGLOBULIN G\HYALURONIDASE RECOMBINANT HUMAN [Suspect]
     Active Substance: HUMAN IMMUNOGLOBULIN G\HYALURONIDASE (HUMAN RECOMBINANT)
     Dosage: 32.5 GRAM, Q4WEEKS
  7. HUMAN IMMUNOGLOBULIN G\HYALURONIDASE RECOMBINANT HUMAN [Suspect]
     Active Substance: HUMAN IMMUNOGLOBULIN G\HYALURONIDASE (HUMAN RECOMBINANT)
     Dosage: 32.5 GRAM, Q4WEEKS
     Dates: end: 20250110
  8. TAMOXIFEN [Concomitant]
     Active Substance: TAMOXIFEN
  9. ALLOPURINOL [Concomitant]
     Active Substance: ALLOPURINOL
  10. ATORVASTATIN [Concomitant]
     Active Substance: ATORVASTATIN
  11. HYDROCHLOROTHIAZIDE [Concomitant]
     Active Substance: HYDROCHLOROTHIAZIDE
  12. AMLODIPINE [Concomitant]
     Active Substance: AMLODIPINE BESYLATE
  13. RESTASIS [Concomitant]
     Active Substance: CYCLOSPORINE
     Dosage: UNK UNK, BID
  14. CARBOXYMETHYLCELLULOSE SODIUM\GLYCERIN [Concomitant]
     Active Substance: CARBOXYMETHYLCELLULOSE SODIUM\GLYCERIN
  15. ZOPICLONE [Concomitant]
     Active Substance: ZOPICLONE
  16. VITAMIN D [Concomitant]
     Active Substance: VITAMIN D NOS
  17. CALCIUM [Concomitant]
     Active Substance: CALCIUM
  18. TYLENOL [Concomitant]
     Active Substance: ACETAMINOPHEN
  19. MAGNESIUM [Concomitant]
     Active Substance: MAGNESIUM
  20. NAPROXEN [Concomitant]
     Active Substance: NAPROXEN
  21. VYZULTA [Concomitant]
     Active Substance: LATANOPROSTENE BUNOD
  22. FAMOTIDINE [Concomitant]
     Active Substance: FAMOTIDINE
  23. OMEGA 3 [Concomitant]
     Active Substance: CAPSAICIN

REACTIONS (5)
  - Eczema [Unknown]
  - Alopecia [Unknown]
  - Pruritus [Unknown]
  - Dermatitis [Unknown]
  - Incorrect dose administered [Unknown]

NARRATIVE: CASE EVENT DATE: 20240101
